FAERS Safety Report 14768464 (Version 2)
Quarter: 2018Q2

REPORT INFORMATION
  Report Type: Spontaneous
  Country: CA (occurrence: CA)
  Receive Date: 20180417
  Receipt Date: 20180501
  Transmission Date: 20180711
  Serious: Yes (Other)
  Sender: FDA-Public Use
  Company Number: CA-PFIZER INC-2017134205

PATIENT
  Age: 47 Year
  Sex: Female

DRUGS (4)
  1. PENTASA [Concomitant]
     Active Substance: MESALAMINE
     Dosage: UNK
  2. FOLIC ACID. [Concomitant]
     Active Substance: FOLIC ACID
     Dosage: UNK
  3. METHOTREXATE. [Concomitant]
     Active Substance: METHOTREXATE
     Indication: RHEUMATOID ARTHRITIS
     Dosage: UNK
  4. XELJANZ [Suspect]
     Active Substance: TOFACITINIB CITRATE
     Indication: RHEUMATOID ARTHRITIS
     Dosage: 5 MG, TWICE DAILY
     Route: 048
     Dates: start: 20170125, end: 201803

REACTIONS (8)
  - Cough [Unknown]
  - Back pain [Unknown]
  - Joint range of motion decreased [Unknown]
  - Malaise [Unknown]
  - Musculoskeletal discomfort [Unknown]
  - Cholelithiasis [Unknown]
  - Nasopharyngitis [Unknown]
  - Tendon disorder [Unknown]

NARRATIVE: CASE EVENT DATE: 20170323
